FAERS Safety Report 9149644 (Version 4)
Quarter: 2013Q3

REPORT INFORMATION
  Report Type: Spontaneous
  Country: DE (occurrence: CA)
  Receive Date: 20130308
  Receipt Date: 20130927
  Transmission Date: 20140515
  Serious: Yes (Death, Hospitalization, Other)
  Sender: FDA-Public Use
  Company Number: CA-FRI-1000042885

PATIENT
  Age: 75 Year
  Sex: Male
  Weight: 80 kg

DRUGS (6)
  1. ROFLUMILAST [Suspect]
     Indication: CHRONIC OBSTRUCTIVE PULMONARY DISEASE
     Dosage: 500 MCG
     Route: 048
     Dates: start: 20120520, end: 20130313
  2. ROFLUMILAST [Suspect]
     Dosage: 500 MCG
     Route: 048
     Dates: end: 20130313
  3. SALBUTAMOL [Concomitant]
     Dosage: 200 MCG-400 MCG
  4. FORMOTEROL W/BUDESONIDE [Concomitant]
     Dosage: 800 MG/24 MG
     Route: 048
  5. FORMOTEROL W/BUDESONIDE [Concomitant]
     Dosage: 300 MG/6 MG
     Route: 048
  6. TIOTROPIUM [Concomitant]
     Dosage: 18 MCG
     Route: 048

REACTIONS (4)
  - Respiratory failure [Fatal]
  - Chronic obstructive pulmonary disease [Recovered/Resolved]
  - Atrial fibrillation [Recovering/Resolving]
  - Hypoxia [Recovered/Resolved]
